FAERS Safety Report 8599520-8 (Version None)
Quarter: 2012Q3

REPORT INFORMATION
  Report Type: 
  Country: None (occurrence: None)
  Receive Date: 20120816
  Receipt Date: 20120726
  Transmission Date: 20120928
  Serious: No
  Sender: FDA-Public Use
  Company Number: US-ALLERGAN-1209422US

PATIENT
  Age: 71 Year
  Sex: Female

DRUGS (1)
  1. LASTACAFT [Suspect]
     Indication: EYE ALLERGY
     Dosage: 2 GTT, UNK
     Route: 047
     Dates: start: 20120707, end: 20120708

REACTIONS (4)
  - EYE IRRITATION [None]
  - EYE PRURITUS [None]
  - ASTHENOPIA [None]
  - OCULAR HYPERAEMIA [None]
